FAERS Safety Report 15728561 (Version 1)
Quarter: 2018Q4

REPORT INFORMATION
  Report Type: Spontaneous
  Country: CA (occurrence: CA)
  Receive Date: 20181217
  Receipt Date: 20181217
  Transmission Date: 20190205
  Serious: Yes (Other)
  Sender: FDA-Public Use
  Company Number: CA-BAYER-2018-234810

PATIENT
  Age: 67 Year
  Sex: Male

DRUGS (5)
  1. IOPROMIDE 370 [Suspect]
     Active Substance: IOPROMIDE
     Dosage: UNK UNK, ONCE
  2. LENVATINIB [Suspect]
     Active Substance: LENVATINIB
     Dosage: UNK
  3. IOMEPROL [Suspect]
     Active Substance: IOMEPROL
     Indication: ANGIOCARDIOGRAM
     Dosage: 110 UNK
  4. IOMEPROL [Suspect]
     Active Substance: IOMEPROL
     Indication: ANGIOCARDIOGRAM
     Dosage: 140 ML
  5. IOMEPROL [Suspect]
     Active Substance: IOMEPROL
     Indication: PERIPHERAL ARTERY ANGIOPLASTY
     Dosage: 85 UNK

REACTIONS (2)
  - Contraindicated product administered [None]
  - Nephropathy toxic [None]
